FAERS Safety Report 23148661 (Version 1)
Quarter: 2023Q4

REPORT INFORMATION
  Report Type: Spontaneous
  Country: US (occurrence: US)
  Receive Date: 20231106
  Receipt Date: 20231106
  Transmission Date: 20240109
  Serious: No
  Sender: FDA-Public Use
  Company Number: US-Albireo AB-2023ALB000248

PATIENT
  Age: 3 Year
  Sex: Female

DRUGS (2)
  1. BYLVAY [Suspect]
     Active Substance: ODEVIXIBAT
     Indication: Progressive familial intrahepatic cholestasis
     Route: 048
     Dates: start: 20230822
  2. MARALIXIBAT [Concomitant]
     Active Substance: MARALIXIBAT
     Indication: Product used for unknown indication
     Dosage: TAKEN IN AM
     Route: 065
     Dates: end: 20230822

REACTIONS (3)
  - Pyrexia [Unknown]
  - Off label use [Not Recovered/Not Resolved]
  - Pruritus [Not Recovered/Not Resolved]

NARRATIVE: CASE EVENT DATE: 20230822
